FAERS Safety Report 4588782-X (Version None)
Quarter: 2005Q1

REPORT INFORMATION
  Report Type: 
  Country: None (occurrence: None)
  Receive Date: 20050216
  Receipt Date: 20050204
  Transmission Date: 20050727
  Serious: Yes (Other)
  Sender: FDA-Public Use
  Company Number: 2005026789

PATIENT
  Age: 52 Year
  Sex: Male
  Weight: 88.4514 kg

DRUGS (4)
  1. GABAPENTIN [Suspect]
     Indication: PAIN
     Dosage: 2400 MG (1 D), ORAL
     Route: 048
     Dates: start: 20000101, end: 20040415
  2. NEFAZODONE HYDROOCXHLORIDE (NEFAZODONE HYDROOCXHLORIDE) [Suspect]
     Indication: POST-TRAUMATIC STRESS DISORDER
     Dosage: ORAL
     Route: 048
  3. ESCITALOPRAM (ESCITALOPRAM) [Suspect]
     Indication: ILL-DEFINED DISORDER
  4. CLONAZEPAM [Concomitant]

REACTIONS (19)
  - ABASIA [None]
  - BACK PAIN [None]
  - BALANCE DISORDER [None]
  - CHOKING [None]
  - COGNITIVE DISORDER [None]
  - DRUG INEFFECTIVE [None]
  - DYSTONIA [None]
  - FEELING ABNORMAL [None]
  - HEADACHE [None]
  - LOSS OF CONSCIOUSNESS [None]
  - NUCLEAR MAGNETIC RESONANCE IMAGING BRAIN ABNORMAL [None]
  - PAIN [None]
  - PHARYNGOLARYNGEAL PAIN [None]
  - ROAD TRAFFIC ACCIDENT [None]
  - SOMNOLENCE [None]
  - SPEECH DISORDER [None]
  - TREMOR [None]
  - VISION BLURRED [None]
  - WALKING AID USER [None]
